FAERS Safety Report 12705069 (Version 1)
Quarter: 2016Q3

REPORT INFORMATION
  Report Type: Spontaneous
  Country: US (occurrence: None)
  Receive Date: 20160831
  Receipt Date: 20160831
  Transmission Date: 20161109
  Serious: Yes (Hospitalization)
  Sender: FDA-Public Use
  Company Number: None

PATIENT

DRUGS (1)
  1. COMFORT SHIELD BARRIER [Suspect]
     Active Substance: DIMETHICONE

REACTIONS (1)
  - Product quality issue [None]
